FAERS Safety Report 7979400-9 (Version None)
Quarter: 2011Q4

REPORT INFORMATION
  Report Type: 
  Country: None (occurrence: None)
  Receive Date: 20111214
  Receipt Date: 20111209
  Transmission Date: 20120403
  Serious: Yes (Death)
  Sender: FDA-Public Use
  Company Number: MX-SANOFI-AVENTIS-2011SA080921

PATIENT
  Age: 63 Year
  Sex: Female

DRUGS (4)
  1. CALCITRIOL [Concomitant]
     Route: 048
     Dates: end: 20111017
  2. LANTUS [Suspect]
     Indication: TYPE 2 DIABETES MELLITUS
     Route: 058
     Dates: start: 20040101, end: 20111017
  3. ADALAT CC [Concomitant]
     Route: 048
     Dates: start: 20030101, end: 20111017
  4. OMEPRAZOLE [Concomitant]
     Route: 048
     Dates: end: 20111017

REACTIONS (1)
  - MYOCARDIAL INFARCTION [None]
